FAERS Safety Report 7613329-0 (Version None)
Quarter: 2011Q3

REPORT INFORMATION
  Report Type: 
  Country: None (occurrence: None)
  Receive Date: 20110708
  Receipt Date: 20110621
  Transmission Date: 20111222
  Serious: Yes (Hospitalization, Other)
  Sender: FDA-Public Use
  Company Number: JPI-P-015554

PATIENT
  Age: 47 Year
  Sex: Female
  Weight: 85.7298 kg

DRUGS (10)
  1. IBUPROFEN [Concomitant]
  2. XYREM [Suspect]
     Indication: FIBROMYALGIA
     Dosage: , ORAL 6 GM (6 GM, 1 IN 1 D), ORAL
     Route: 048
     Dates: start: 20041101
  3. XYREM [Suspect]
     Indication: FIBROMYALGIA
     Dosage: , ORAL 6 GM (6 GM, 1 IN 1 D), ORAL
     Route: 048
     Dates: end: 20110617
  4. PHENELZINE [Concomitant]
  5. UNSPECIFIED BENZODIAZEPINES [Suspect]
     Indication: PRODUCT USED FOR UNKNOWN INDICATION
  6. HYDROMORPHONE HCL [Concomitant]
  7. ZALEPLON [Concomitant]
  8. ACETAMINOPHEN AND HYDROCODONE [Concomitant]
  9. CLONAZEPAM [Concomitant]
  10. UNSPECIFIED NARCOTICS [Suspect]
     Indication: PRODUCT USED FOR UNKNOWN INDICATION

REACTIONS (8)
  - DYSSTASIA [None]
  - FALL [None]
  - MENTAL STATUS CHANGES [None]
  - RESPIRATORY ARREST [None]
  - MUSCULAR WEAKNESS [None]
  - DRY EYE [None]
  - DEHYDRATION [None]
  - MULTIPLE DRUG OVERDOSE [None]
